FAERS Safety Report 8371369-0 (Version None)
Quarter: 2012Q2

REPORT INFORMATION
  Report Type: 
  Country: None (occurrence: None)
  Receive Date: 20120518
  Receipt Date: 20120514
  Transmission Date: 20120825
  Serious: Yes (Other)
  Sender: FDA-Public Use
  Company Number: PHHY2012MX027391

PATIENT
  Sex: Female

DRUGS (4)
  1. DUFOCAL [Concomitant]
     Indication: HYPERTENSION
     Dosage: 1 DF, UNK
  2. EXFORGE [Suspect]
     Indication: HYPERTENSION
     Dosage: 1 TABLET (160/10 MG) PER DAY
     Dates: start: 20120101
  3. VALERIANA [Concomitant]
     Indication: DEPRESSION
     Dosage: 1 DF, PER DAY
  4. ASPIRIN [Concomitant]
     Dosage: 1 DF, PER DAY
     Dates: start: 20070301

REACTIONS (4)
  - BLOOD PRESSURE INADEQUATELY CONTROLLED [None]
  - DEPRESSION [None]
  - HEADACHE [None]
  - CARDIAC DISCOMFORT [None]
